FAERS Safety Report 16363551 (Version 1)
Quarter: 2019Q2

REPORT INFORMATION
  Report Type: Spontaneous
  Country: GB (occurrence: GB)
  Receive Date: 20190528
  Receipt Date: 20190528
  Transmission Date: 20190711
  Serious: Yes (Death, Life-Threatening, Hospitalization, Other)
  Sender: FDA-Public Use
  Company Number: GB-MYLANLABS-2019M1048570

PATIENT
  Age: 31 Year
  Sex: Female

DRUGS (4)
  1. EPOPROSTENOL. [Suspect]
     Active Substance: EPOPROSTENOL
     Indication: PULMONARY ARTERIAL HYPERTENSION
     Dosage: UNK UNK,UNK
     Route: 042
  2. TADALAFIL. [Suspect]
     Active Substance: TADALAFIL
     Indication: PULMONARY ARTERIAL HYPERTENSION
     Dosage: UNK UNK,UNK
     Route: 048
  3. METHOTREXATE. [Suspect]
     Active Substance: METHOTREXATE
     Indication: STILL^S DISEASE
     Dosage: UNK UNK,UNK
     Route: 065
  4. PREDNISONE. [Suspect]
     Active Substance: PREDNISONE
     Indication: STILL^S DISEASE
     Dosage: UNK UNK,UNK
     Route: 065

REACTIONS (8)
  - Acute respiratory distress syndrome [Fatal]
  - Pulmonary arterial hypertension [Fatal]
  - Drug ineffective [Fatal]
  - Still^s disease [Fatal]
  - Off label use [Unknown]
  - Condition aggravated [Fatal]
  - Right ventricular failure [Unknown]
  - Intentional product misuse [Unknown]
